FAERS Safety Report 8360033-X (Version None)
Quarter: 2012Q1

REPORT INFORMATION
  Report Type: 
  Country: None (occurrence: None)
  Receive Date: 20120323
  Receipt Date: 20111208
  Transmission Date: 20120608
  Serious: Yes (Hospitalization, Other)
  Sender: FDA-Public Use
  Company Number: 163-21880-11101938

PATIENT
  Age: 81 Year
  Sex: Female
  Weight: 88.4514 kg

DRUGS (2)
  1. REVLIMID [Suspect]
     Indication: MYELODYSPLASTIC SYNDROME
     Dosage: 10 MG, DAYS 1-21, PO
     Route: 048
     Dates: start: 20110921, end: 20111012
  2. REVLIMID [Suspect]
     Indication: MYELODYSPLASTIC SYNDROME
     Dosage: 10 MG, DAYS 1-21, PO
     Route: 048
     Dates: end: 20111103

REACTIONS (9)
  - RESTLESSNESS [None]
  - DRUG INEFFECTIVE [None]
  - PANCYTOPENIA [None]
  - PYREXIA [None]
  - FATIGUE [None]
  - DIARRHOEA [None]
  - CONDITION AGGRAVATED [None]
  - MYCOPLASMA INFECTION [None]
  - RASH [None]
